FAERS Safety Report 12933452 (Version 1)
Quarter: 2016Q4

REPORT INFORMATION
  Report Type: Other
  Country: ES (occurrence: ES)
  Receive Date: 20161111
  Receipt Date: 20161111
  Transmission Date: 20170207
  Serious: Yes (Hospitalization, Other)
  Sender: FDA-Public Use
  Company Number: ES-ASTELLAS-2016US043990

PATIENT
  Age: 58 Year
  Sex: Female

DRUGS (3)
  1. TRANXILIUM [Suspect]
     Active Substance: CLORAZEPATE DIPOTASSIUM
     Indication: OBSESSIVE-COMPULSIVE DISORDER
     Route: 048
     Dates: start: 20100729, end: 20150511
  2. SEROXAT [Suspect]
     Active Substance: PAROXETINE HYDROCHLORIDE
     Indication: OBSESSIVE-COMPULSIVE DISORDER
     Route: 048
     Dates: start: 20100907, end: 20150511
  3. VESICARE [Suspect]
     Active Substance: SOLIFENACIN SUCCINATE
     Indication: URINARY INCONTINENCE
     Route: 048
     Dates: start: 20130603, end: 20150511

REACTIONS (6)
  - Umbilical hernia [Unknown]
  - Pyelonephritis [Unknown]
  - Uterine leiomyoma [Unknown]
  - Deep vein thrombosis [Recovered/Resolved]
  - Adrenomegaly [Unknown]
  - Liver disorder [Unknown]

NARRATIVE: CASE EVENT DATE: 20150511
